FAERS Safety Report 26089602 (Version 1)
Quarter: 2025Q4

REPORT INFORMATION
  Report Type: Spontaneous
  Country: AU (occurrence: AU)
  Receive Date: 20251125
  Receipt Date: 20251125
  Transmission Date: 20260118
  Serious: Yes (Other)
  Sender: DAITO PHARMACEUTICALS
  Company Number: AU-Daito Pharmaceutical Co., Ltd.-2189326

PATIENT
  Age: 66 Year
  Sex: Male

DRUGS (1)
  1. METHOTREXATE SODIUM [Suspect]
     Active Substance: METHOTREXATE SODIUM
     Indication: Rheumatoid arthritis

REACTIONS (3)
  - Leukoencephalopathy [Recovered/Resolved]
  - Product use issue [Unknown]
  - Toxicity to various agents [Unknown]
